FAERS Safety Report 26059546 (Version 1)
Quarter: 2025Q4

REPORT INFORMATION
  Report Type: Spontaneous
  Country: US (occurrence: US)
  Receive Date: 20251118
  Receipt Date: 20251118
  Transmission Date: 20260118
  Serious: No
  Sender: NANTKWEST
  Company Number: US-NantWorks-2025-US-NANT-00061

PATIENT
  Age: 85 Year
  Sex: Male
  Weight: 79.4 kg

DRUGS (2)
  1. ANKTIVA [Suspect]
     Active Substance: NOGAPENDEKIN ALFA INBAKICEPT-PMLN
     Indication: Bladder cancer
     Dosage: THERAPY START DATE
     Route: 043
     Dates: start: 20250819
  2. ANKTIVA [Suspect]
     Active Substance: NOGAPENDEKIN ALFA INBAKICEPT-PMLN
     Dosage: DATE OF LAST DOSE PRIOR TO ONSET OF EVENT (SECOND DOSE)
     Route: 043
     Dates: start: 20250826

REACTIONS (1)
  - Chills [Recovered/Resolved]

NARRATIVE: CASE EVENT DATE: 20250826
